FAERS Safety Report 9250239 (Version 3)
Quarter: 2014Q1

REPORT INFORMATION
  Report Type: Spontaneous
  Country: US (occurrence: US)
  Receive Date: 20130424
  Receipt Date: 20140131
  Transmission Date: 20141002
  Serious: Yes (Disabling, Other)
  Sender: FDA-Public Use
  Company Number: US-ASTRAZENECA-2013SE27294

PATIENT
  Age: 70 Year
  Sex: Female

DRUGS (21)
  1. NEXIUM [Suspect]
     Indication: GASTROOESOPHAGEAL REFLUX DISEASE
     Route: 048
     Dates: start: 20051228, end: 20110328
  2. PROTONIX [Concomitant]
     Indication: GASTROOESOPHAGEAL REFLUX DISEASE
     Dates: start: 20110608, end: 2013
  3. TAGAMET [Concomitant]
     Dates: start: 19970218, end: 19991213
  4. ZANTAC [Concomitant]
     Dates: start: 20000113, end: 20050104
  5. ALENDRONATE [Concomitant]
     Route: 048
     Dates: start: 20091201, end: 2013
  6. RISEDRONATE [Concomitant]
     Dates: start: 19980128, end: 20080111
  7. POTASSIUM [Concomitant]
     Dates: end: 2013
  8. ESTROGEN [Concomitant]
     Dates: start: 19980128, end: 20060131
  9. CLONIDINE [Concomitant]
     Dates: start: 20000819, end: 20030124
  10. ACETAMINOPHEN- CODEINE [Concomitant]
     Indication: PAIN
     Dates: start: 20130208
  11. FLUTICASONE [Concomitant]
     Indication: DYSPNOEA
     Dosage: 90 MCG 2 PUFF BY MOUTH EVERY 6 HR
     Dates: start: 20130208
  12. FLUTICASONE- SALMETEROL [Concomitant]
     Dosage: 100 TO 50 MCG/DOSE 1 PUFF EVERY 12 HR
     Dates: start: 20130208
  13. METHOCARBAMOL [Concomitant]
     Dates: start: 20121207
  14. TRAZODONE [Concomitant]
     Route: 048
     Dates: start: 20121207
  15. GABAPENTIN [Concomitant]
     Route: 048
     Dates: start: 20121010
  16. TRIMTERENE-HYDROCHLOROTHIZIDE [Concomitant]
     Dosage: 37.5 TO 25 MG  1 TAB BY MOUTH DAILY
     Route: 048
     Dates: start: 20121010
  17. CRESTOR [Concomitant]
     Dates: start: 20120703
  18. POTASSIUM CHLORIDE [Concomitant]
     Route: 048
     Dates: start: 20120228
  19. PANTOPRAZOLE EC [Concomitant]
  20. IODINE [Concomitant]
     Dates: start: 20080226
  21. ASPIRIN [Concomitant]
     Indication: CARDIAC DISORDER

REACTIONS (25)
  - Back pain [Unknown]
  - Arthropathy [Unknown]
  - Osteoporosis [Unknown]
  - Bone disorder [Unknown]
  - Multiple fractures [Unknown]
  - Pain in extremity [Unknown]
  - Arthritis [Unknown]
  - Shoulder deformity [Unknown]
  - Calcium deficiency [Unknown]
  - Chronic obstructive pulmonary disease [Unknown]
  - Cardiovascular disorder [Unknown]
  - Aortic disorder [Unknown]
  - Peripheral arterial occlusive disease [Unknown]
  - Rheumatoid arthritis [Unknown]
  - Liver injury [Unknown]
  - Osteoarthritis [Unknown]
  - Meniscus injury [Unknown]
  - Foot fracture [Unknown]
  - Spinal osteoarthritis [Unknown]
  - Coronary artery disease [Unknown]
  - Lumbar radiculopathy [Unknown]
  - Scoliosis [Unknown]
  - Osteopenia [Unknown]
  - Arthralgia [Unknown]
  - Depression [Unknown]
